FAERS Safety Report 14242580 (Version 1)
Quarter: 2017Q4

REPORT INFORMATION
  Report Type: Spontaneous
  Country: US (occurrence: US)
  Receive Date: 20171201
  Receipt Date: 20171201
  Transmission Date: 20180321
  Serious: Yes (Other)
  Sender: FDA-Public Use
  Company Number: US-ACCORD-061505

PATIENT
  Sex: Female

DRUGS (1)
  1. QUETIAPINE. [Suspect]
     Active Substance: QUETIAPINE
     Indication: SLEEP DISORDER
     Dosage: IMMEDIATE RELEASE

REACTIONS (5)
  - Speech disorder [Unknown]
  - Chest pain [Unknown]
  - Dysgeusia [Unknown]
  - Tremor [Unknown]
  - Muscular weakness [Unknown]
